FAERS Safety Report 8790373 (Version 2)
Quarter: 2012Q4

REPORT INFORMATION
  Report Type: 
  Country: DE (occurrence: DE)
  Receive Date: 20120917
  Receipt Date: 20121012
  Transmission Date: 20130627
  Serious: Yes (Other)
  Sender: FDA-Public Use
  Company Number: DE-JNJFOC-20120903662

PATIENT
  Age: 51 Year
  Sex: Female

DRUGS (1)
  1. SIMPONI [Suspect]
     Indication: PSORIATIC ARTHROPATHY
     Route: 058
     Dates: start: 20120508

REACTIONS (5)
  - Stomatitis [Recovered/Resolved]
  - Psoriatic arthropathy [Recovered/Resolved]
  - Nasal inflammation [Recovered/Resolved]
  - Pharyngitis [Recovered/Resolved]
  - Liver function test abnormal [Recovered/Resolved]
